FAERS Safety Report 9197558 (Version 2)
Quarter: 2013Q2

REPORT INFORMATION
  Report Type: Spontaneous
  Country: US (occurrence: US)
  Receive Date: 20130328
  Receipt Date: 20130502
  Transmission Date: 20140414
  Serious: Yes (Hospitalization)
  Sender: FDA-Public Use
  Company Number: US-JNJFOC-20130312340

PATIENT
  Sex: Female
  Weight: 106.6 kg

DRUGS (20)
  1. TOPAMAX [Suspect]
     Indication: CONVULSION
     Route: 048
     Dates: end: 201211
  2. TOPAMAX [Suspect]
     Indication: CONVULSION
     Dosage: 200 MG IN MORNING AND 300MG IN EVENING
     Route: 048
     Dates: end: 201211
  3. TOPAMAX [Suspect]
     Indication: CONVULSION
     Dosage: 200 MG STRENGTH OF TABLETS
     Route: 048
  4. TOPAMAX [Suspect]
     Indication: MYOCLONUS
     Route: 048
     Dates: end: 201211
  5. TOPAMAX [Suspect]
     Indication: MYOCLONUS
     Dosage: 200 MG IN MORNING AND 300MG IN EVENING
     Route: 048
     Dates: end: 201211
  6. TOPAMAX [Suspect]
     Indication: MYOCLONUS
     Dosage: 200 MG STRENGTH OF TABLETS
     Route: 048
  7. ZANAFLEX [Concomitant]
     Indication: MUSCLE SPASMS
     Route: 048
     Dates: start: 1999
  8. CLONAZEPAM [Concomitant]
     Indication: MUSCLE SPASMS
     Route: 048
     Dates: start: 201209
  9. CLONAZEPAM [Concomitant]
     Indication: MYOCLONUS
     Route: 048
     Dates: start: 201209
  10. SPIRONOLACTONE [Concomitant]
     Indication: POLYCYSTIC OVARIES
     Route: 048
  11. LEVOTHYROXINE [Concomitant]
     Indication: THYROID DISORDER
     Route: 048
  12. POTASSIUM CHLORIDE [Concomitant]
     Indication: NUTRITIONAL SUPPLEMENTATION
     Route: 048
  13. PRIMIDONE [Concomitant]
     Indication: CONVULSION
     Route: 048
  14. METFORMIN [Concomitant]
     Indication: DIABETES MELLITUS
     Route: 048
  15. NITROFURANTOIN [Concomitant]
     Indication: URINARY TRACT INFECTION
     Route: 048
  16. CYMBALTA [Concomitant]
     Indication: PAIN
     Route: 048
  17. EVOXAC [Concomitant]
     Indication: DRY MOUTH
     Route: 048
  18. OMEPRAZOLE [Concomitant]
     Indication: GASTRIC DISORDER
     Route: 048
  19. DICYCLOMINE [Concomitant]
     Indication: URINARY TRACT INFECTION
     Route: 048
  20. DOXEPIN [Concomitant]
     Indication: PRODUCT USED FOR UNKNOWN INDICATION
     Dosage: 2 TABLETS OF 10MG
     Route: 048

REACTIONS (10)
  - Overdose [Recovered/Resolved]
  - Joint dislocation [Recovered/Resolved]
  - Intrinsic factor deficiency [Not Recovered/Not Resolved]
  - Gastric disorder [Not Recovered/Not Resolved]
  - Malabsorption [Not Recovered/Not Resolved]
  - Bone density decreased [Not Recovered/Not Resolved]
  - Rickets [Not Recovered/Not Resolved]
  - Osteopenia [Not Recovered/Not Resolved]
  - Tooth disorder [Not Recovered/Not Resolved]
  - Eating disorder symptom [Not Recovered/Not Resolved]
